FAERS Safety Report 8813992 (Version 2)
Quarter: 2012Q4

REPORT INFORMATION
  Report Type: Spontaneous
  Country: US (occurrence: None)
  Receive Date: 20120921
  Receipt Date: 20120927
  Transmission Date: 20130627
  Serious: Yes (Hospitalization, Other)
  Sender: FDA-Public Use
  Company Number: 2012AP003053

PATIENT
  Age: 16 Year
  Sex: Female

DRUGS (4)
  1. FLUOXETINE HYDROCHLORIDE [Suspect]
     Indication: DRUG USE FOR UNKNOWN INDICATION
     Dosage: 10 mg; QD ; PO oral solution ; 15 mg, QD;
     Route: 048
  2. FLUOXETINE HYDROCHLORIDE [Suspect]
     Indication: DRUG USE FOR UNKNOWN INDICATION
  3. ZIPRASIDONE HYDROCHLORIDE [Suspect]
     Indication: DRUG USE FOR UNKNOWN INDICATION
     Dosage: 60 mg; BID : PO
     Route: 048
  4. QUETIAPINE FUMARATE [Suspect]
     Indication: DRUG USE FOR UNKNOWN INDICATION
     Dosage: 100 MG; QD: PO
     Route: 048

REACTIONS (9)
  - Galactorrhoea [None]
  - Hyperprolactinaemia [None]
  - Mood altered [None]
  - Hostility [None]
  - Breast enlargement [None]
  - Bacterial test positive [None]
  - Loss of consciousness [None]
  - Memory impairment [None]
  - Suicidal ideation [None]
